FAERS Safety Report 13711039 (Version 1)
Quarter: 2017Q3

REPORT INFORMATION
  Report Type: Spontaneous
  Country: FR (occurrence: FR)
  Receive Date: 20170703
  Receipt Date: 20170703
  Transmission Date: 20171127
  Serious: Yes (Hospitalization)
  Sender: FDA-Public Use
  Company Number: FR-BAYER-2017-125771

PATIENT
  Age: 19 Year
  Sex: Female

DRUGS (1)
  1. MIRENA [Suspect]
     Active Substance: LEVONORGESTREL
     Indication: CONTRACEPTION
     Dosage: 20 MCG/24HR, CONT
     Route: 015
     Dates: start: 20030101, end: 20170516

REACTIONS (9)
  - Amnesia [Unknown]
  - Migraine [Unknown]
  - Weight increased [Unknown]
  - Abdominal pain [Unknown]
  - Depression [Unknown]
  - Irritability [Unknown]
  - Fatigue [Unknown]
  - Suicide attempt [Unknown]
  - Breast mass [Unknown]

NARRATIVE: CASE EVENT DATE: 200306
